FAERS Safety Report 5220199-7 (Version None)
Quarter: 2007Q1

REPORT INFORMATION
  Report Type: 
  Country: None (occurrence: None)
  Receive Date: 20061201
  Receipt Date: 20060720
  Transmission Date: 20070707
  Serious: No
  Sender: FDA-Public Use
  Company Number: 2006PV017971

PATIENT
  Sex: Female

DRUGS (4)
  1. BYETTA [Suspect]
     Indication: DIABETES MELLITUS NON-INSULIN-DEPENDENT
     Dosage: SEE IMAGE
     Route: 058
     Dates: start: 20060614, end: 20060712
  2. BYETTA [Suspect]
     Indication: DIABETES MELLITUS NON-INSULIN-DEPENDENT
     Dosage: SEE IMAGE
     Route: 058
     Dates: start: 20060713
  3. AVAPRO [Concomitant]
  4. ACTOS /USA/ [Concomitant]

REACTIONS (5)
  - ABDOMINAL PAIN UPPER [None]
  - ABNORMAL FAECES [None]
  - CONSTIPATION [None]
  - INJECTION SITE BRUISING [None]
  - WEIGHT DECREASED [None]
